FAERS Safety Report 9409550 (Version 2)
Quarter: 2013Q3

REPORT INFORMATION
  Report Type: Spontaneous
  Country: IT (occurrence: IT)
  Receive Date: 20130719
  Receipt Date: 20130725
  Transmission Date: 20140515
  Serious: Yes (Hospitalization)
  Sender: FDA-Public Use
  Company Number: IT-PFIZER INC-2013166849

PATIENT
  Age: 65 Year
  Sex: Female

DRUGS (6)
  1. PANTORC [Suspect]
     Indication: GASTRITIS
     Dosage: 80 MG, DAILY
     Route: 048
     Dates: start: 20130225, end: 20130506
  2. ALDACTONE [Interacting]
     Indication: HYPERTENSION
     Dosage: 25 MG, DAILY
     Route: 048
     Dates: start: 20130225, end: 20130506
  3. BENERVA [Interacting]
     Indication: HYPOVITAMINOSIS
     Dosage: 300 MG, DAILY
     Route: 048
     Dates: start: 20130225, end: 20130506
  4. FOLINA [Interacting]
     Indication: VITAMIN SUPPLEMENTATION
     Dosage: 5 MG, DAILY
     Route: 048
     Dates: start: 20130225, end: 20130506
  5. CITALOPRAM HYDROBROMIDE [Concomitant]
     Indication: DEPRESSION
     Dosage: 5 GTT, UNK
     Route: 048
     Dates: start: 20130225, end: 20130506
  6. LASIX [Concomitant]
     Indication: ASCITES
     Dosage: 50 MG, UNK
     Route: 048
     Dates: start: 20120201, end: 20130506

REACTIONS (2)
  - Rash papular [Recovered/Resolved]
  - Alcohol interaction [Recovered/Resolved]
